FAERS Safety Report 17937069 (Version 3)
Quarter: 2020Q3

REPORT INFORMATION
  Report Type: Spontaneous
  Country: FR (occurrence: FR)
  Receive Date: 20200624
  Receipt Date: 20200714
  Transmission Date: 20201103
  Serious: Yes (Hospitalization, Other)
  Sender: FDA-Public Use
  Company Number: FR-CELGENEUS-FRA-20200605663

PATIENT
  Age: 71 Year
  Sex: Male
  Weight: 54.8 kg

DRUGS (22)
  1. FINASTERIDE. [Concomitant]
     Active Substance: FINASTERIDE
     Indication: BENIGN PROSTATIC HYPERPLASIA
     Dosage: 5 MILLIGRAM
     Route: 048
     Dates: start: 20160301
  2. DARATUMUMAB [Concomitant]
     Active Substance: DARATUMUMAB
     Dosage: 896 MILLIGRAM
     Route: 041
     Dates: start: 20200514
  3. VOGALENE [Concomitant]
     Active Substance: METOPIMAZINE
     Indication: GASTROENTERITIS
     Dosage: 30 MILLIGRAM
     Route: 048
     Dates: start: 20180614
  4. MOPRAL [Concomitant]
     Active Substance: OMEPRAZOLE
     Indication: GASTROOESOPHAGEAL REFLUX DISEASE
     Dosage: 20 MILLIGRAM
     Route: 048
     Dates: start: 20160331
  5. RAMIPRIL. [Concomitant]
     Active Substance: RAMIPRIL
     Indication: ISCHAEMIC HEART DISEASE PROPHYLAXIS
     Dosage: 1.25 MILLIGRAM
     Route: 048
     Dates: start: 2015
  6. REVLIMID [Suspect]
     Active Substance: LENALIDOMIDE
     Dosage: 10 MILLIGRAM
     Route: 048
     Dates: start: 20200514
  7. ZELITREX [Concomitant]
     Active Substance: VALACYCLOVIR HYDROCHLORIDE
     Indication: ANTIVIRAL PROPHYLAXIS
     Dosage: 1000 MILLIGRAM
     Route: 048
     Dates: start: 20160324
  8. ORACILLINE [Concomitant]
     Active Substance: PENICILLIN V
     Indication: ANTIBIOTIC PROPHYLAXIS
     Dosage: 2000000 IU (INTERNATIONAL UNIT)
     Route: 048
     Dates: start: 20160324
  9. BACTRIM [Concomitant]
     Active Substance: SULFAMETHOXAZOLE\TRIMETHOPRIM
     Indication: ANTIBIOTIC PROPHYLAXIS
     Dosage: 800/160MG
     Route: 048
     Dates: start: 20160325
  10. PARACETAMOL [Concomitant]
     Active Substance: ACETAMINOPHEN
     Indication: MUSCULOSKELETAL PAIN
     Route: 065
  11. REVLIMID [Suspect]
     Active Substance: LENALIDOMIDE
     Indication: PLASMA CELL MYELOMA
     Route: 048
     Dates: start: 20160324
  12. DEXAMETHASONE. [Suspect]
     Active Substance: DEXAMETHASONE
     Indication: PLASMA CELL MYELOMA
     Dosage: 20 MILLIGRAM
     Route: 048
     Dates: start: 20160524
  13. DARATUMUMAB [Concomitant]
     Active Substance: DARATUMUMAB
     Indication: PLASMA CELL MYELOMA
     Dosage: 896 MILLIGRAM
     Route: 041
     Dates: start: 20160324
  14. NEORECORMON [Concomitant]
     Active Substance: ERYTHROPOIETIN
     Indication: ANAEMIA
     Dosage: 30000 IU (INTERNATIONAL UNIT)
     Route: 058
     Dates: start: 20160331
  15. VITAMIN D [Concomitant]
     Active Substance: VITAMIN D NOS
     Indication: HYPOCALCAEMIA
     Dosage: 100000 IU (INTERNATIONAL UNIT)
     Route: 048
     Dates: start: 20161103
  16. CARDENSIEL [Concomitant]
     Active Substance: BISOPROLOL FUMARATE
     Indication: ISCHAEMIC HEART DISEASE PROPHYLAXIS
     Dosage: 1.25 MILLIGRAM
     Route: 048
     Dates: start: 2015
  17. DIACURE PLUS [Concomitant]
     Indication: DIARRHOEA
     Route: 065
  18. ZOPICLONE [Concomitant]
     Active Substance: ZOPICLONE
     Indication: SLEEP DISORDER
     Dosage: 7.5 MILLIGRAM
     Route: 048
     Dates: start: 201602
  19. IMODIUMDUO [Concomitant]
     Indication: DIARRHOEA
     Dosage: 2/125MG
     Route: 048
     Dates: start: 20191226
  20. DEXAMETHASONE. [Suspect]
     Active Substance: DEXAMETHASONE
     Dosage: 20 MILLIGRAM
     Route: 048
     Dates: start: 20180518
  21. KARDEGIC [Concomitant]
     Active Substance: ASPIRIN DL-LYSINE
     Indication: THROMBOSIS PROPHYLAXIS
     Dosage: 75 MILLIGRAM
     Route: 048
     Dates: start: 20160310
  22. TAHOR [Concomitant]
     Active Substance: ATORVASTATIN CALCIUM
     Indication: ISCHAEMIC HEART DISEASE PROPHYLAXIS
     Dosage: 10 MILLIGRAM
     Route: 048
     Dates: start: 2015

REACTIONS (1)
  - Benign prostatic hyperplasia [Recovered/Resolved]

NARRATIVE: CASE EVENT DATE: 20200526
